FAERS Safety Report 16846766 (Version 2)
Quarter: 2021Q4

REPORT INFORMATION
  Report Type: Spontaneous
  Country: US (occurrence: US)
  Receive Date: 20190924
  Receipt Date: 20211005
  Transmission Date: 20220303
  Serious: Yes (Disabling, Other)
  Sender: FDA-Public Use
  Company Number: US-TEVA-2019-US-1111391

PATIENT
  Age: 33 Year
  Sex: Female
  Weight: 53.52 kg

DRUGS (5)
  1. DOCETAXEL [Suspect]
     Active Substance: DOCETAXEL
     Indication: Breast cancer female
     Dosage: NUMBER OF CYCLE - 06, FREQUENCY - EVERY THREE WEEKS?DOCETAXEL 75MG/M2
     Route: 042
     Dates: start: 20141028, end: 20150210
  2. CARBOPLATIN [Suspect]
     Active Substance: CARBOPLATIN
     Indication: Breast cancer female
     Dosage: NUMBER OF CYCLE - 06, FREQUENCY - EVERY THREE WEEKS
     Route: 042
     Dates: start: 20141028, end: 20150210
  3. PERJETA [Suspect]
     Active Substance: PERTUZUMAB
     Indication: Breast cancer female
     Dosage: NUMBER OF CYCLE - 06, FREQUENCY - EVERY THREE WEEKS,?PERTUZUMAB 420MG
     Route: 042
     Dates: start: 20141028, end: 20150310
  4. HERCEPTIN [Suspect]
     Active Substance: TRASTUZUMAB
     Indication: Breast cancer female
     Dosage: NUMBER OF CYCLE - 06, FREQUENCY - EVERY THREE WEEKS?TRASTUZUMAB 6MG/KG
     Route: 042
     Dates: start: 20141028, end: 20150210
  5. PREVACID [Concomitant]
     Active Substance: LANSOPRAZOLE
     Route: 065
     Dates: start: 2007

REACTIONS (23)
  - Alopecia areata [Not Recovered/Not Resolved]
  - Madarosis [Not Recovered/Not Resolved]
  - Rectal haemorrhage [Unknown]
  - Hair texture abnormal [Not Recovered/Not Resolved]
  - Hair colour changes [Not Recovered/Not Resolved]
  - Stomatitis [Recovered/Resolved]
  - Diarrhoea [Recovered/Resolved]
  - Vomiting [Recovered/Resolved]
  - Fatigue [Unknown]
  - Dehydration [Unknown]
  - Decreased appetite [Not Recovered/Not Resolved]
  - Hypophagia [Not Recovered/Not Resolved]
  - Rash [Unknown]
  - Palmar-plantar erythrodysaesthesia syndrome [Unknown]
  - Musculoskeletal chest pain [Not Recovered/Not Resolved]
  - Tachycardia [Unknown]
  - Chest discomfort [Recovered/Resolved]
  - Weight decreased [Unknown]
  - Headache [Unknown]
  - Vaginal haemorrhage [Unknown]
  - Faeces hard [Unknown]
  - Visual acuity reduced [Unknown]
  - Bone loss [Unknown]

NARRATIVE: CASE EVENT DATE: 20140101
